FAERS Safety Report 5701918-X (Version None)
Quarter: 2008Q2

REPORT INFORMATION
  Report Type: 
  Country: None (occurrence: None)
  Receive Date: 20080411
  Receipt Date: 20080407
  Transmission Date: 20081010
  Serious: Yes (Hospitalization)
  Sender: FDA-Public Use
  Company Number: US-BRISTOL-MYERS SQUIBB COMPANY-14142442

PATIENT
  Age: 63 Year
  Sex: Male

DRUGS (1)
  1. DEFINITY [Suspect]
     Dates: start: 20080405

REACTIONS (1)
  - CARDIAC ARREST [None]
